FAERS Safety Report 8428722-6 (Version None)
Quarter: 2012Q2

REPORT INFORMATION
  Report Type: 
  Country: None (occurrence: None)
  Receive Date: 20120606
  Receipt Date: 20120529
  Transmission Date: 20120825
  Serious: Yes (Other)
  Sender: FDA-Public Use
  Company Number: AUR-APL-2012-02513

PATIENT
  Sex: Female

DRUGS (2)
  1. VENLAFAXINE HCL [Suspect]
     Indication: PRODUCT USED FOR UNKNOWN INDICATION
  2. EFFEXOR XR [Suspect]
     Indication: PRODUCT USED FOR UNKNOWN INDICATION
     Dosage: ORAL
     Route: 048

REACTIONS (9)
  - WITHDRAWAL SYNDROME [None]
  - CRYING [None]
  - VOMITING [None]
  - TREMOR [None]
  - DIARRHOEA HAEMORRHAGIC [None]
  - DECREASED APPETITE [None]
  - HEADACHE [None]
  - BEDRIDDEN [None]
  - DIZZINESS [None]
